FAERS Safety Report 6670881-X (Version None)
Quarter: 2010Q2

REPORT INFORMATION
  Report Type: 
  Country: None (occurrence: None)
  Receive Date: 20100407
  Receipt Date: 20100326
  Transmission Date: 20101027
  Serious: Yes (Hospitalization)
  Sender: FDA-Public Use
  Company Number: BR-MEDIMMUNE-MEDI-0010929

PATIENT
  Sex: Male
  Weight: 8.6 kg

DRUGS (4)
  1. SYNAGIS [Suspect]
     Route: 030
     Dates: start: 20090519
  2. SYNAGIS [Suspect]
  3. CROMOLYN SODIUM [Concomitant]
     Indication: BRONCHITIS
     Route: 055
     Dates: start: 20091220
  4. AZITHROMYCIN [Concomitant]
     Indication: BRONCHITIS
     Route: 048
     Dates: start: 20091220, end: 20091227

REACTIONS (1)
  - BRONCHITIS [None]
